FAERS Safety Report 13880213 (Version 1)
Quarter: 2017Q3

REPORT INFORMATION
  Report Type: Spontaneous
  Country: IT (occurrence: IT)
  Receive Date: 20170818
  Receipt Date: 20170818
  Transmission Date: 20171127
  Serious: Yes (Hospitalization)
  Sender: FDA-Public Use
  Company Number: IT-BRISTOL-MYERS SQUIBB COMPANY-BMS-2017-071154

PATIENT
  Age: 83 Year
  Sex: Male
  Weight: 68 kg

DRUGS (3)
  1. DEPAKIN CHRONO                     /00228502/ [Concomitant]
     Active Substance: VALPROATE SODIUM
     Indication: STATUS EPILEPTICUS
     Dosage: 2500 MG, UNK
     Route: 065
     Dates: start: 20150101
  2. CO-APROVEL [Concomitant]
     Active Substance: HYDROCHLOROTHIAZIDE\IRBESARTAN
     Indication: HYPERTENSION
     Dosage: 1 UNIT, UNK
     Route: 065
     Dates: start: 20070101
  3. COUMADIN [Suspect]
     Active Substance: WARFARIN SODIUM
     Indication: AORTIC ANASTOMOSIS
     Dosage: 5 MG, PRN
     Route: 048
     Dates: start: 20080101

REACTIONS (3)
  - Injury [Recovered/Resolved with Sequelae]
  - Pain in extremity [Recovered/Resolved with Sequelae]
  - Haematoma [Recovered/Resolved with Sequelae]

NARRATIVE: CASE EVENT DATE: 20170730
